FAERS Safety Report 17084031 (Version 4)
Quarter: 2020Q1

REPORT INFORMATION
  Report Type: Spontaneous
  Country: DE (occurrence: DE)
  Receive Date: 20191127
  Receipt Date: 20200319
  Transmission Date: 20200409
  Serious: Yes (Other)
  Sender: FDA-Public Use
  Company Number: NVSC2019DE045286

PATIENT
  Sex: Male

DRUGS (2)
  1. COSENTYX [Suspect]
     Active Substance: SECUKINUMAB
     Indication: PRODUCT USED FOR UNKNOWN INDICATION
     Dosage: 300 MG, QMO (PRE-FILLED PEN)
     Route: 065
     Dates: start: 201610
  2. LEGALON [Concomitant]
     Active Substance: DIETARY SUPPLEMENT\HERBALS\MILK THISTLE
     Indication: LIVER DISORDER
     Dosage: UNK
     Route: 065
     Dates: start: 201912

REACTIONS (7)
  - Pruritus [Recovered/Resolved]
  - Therapeutic product effect decreased [Unknown]
  - Anal abscess [Not Recovered/Not Resolved]
  - Influenza like illness [Unknown]
  - Psoriasis [Unknown]
  - Product dose omission [Recovered/Resolved]
  - Impaired healing [Not Recovered/Not Resolved]

NARRATIVE: CASE EVENT DATE: 20191113
